FAERS Safety Report 9583412 (Version 1)
Quarter: 2013Q4

REPORT INFORMATION
  Report Type: Spontaneous
  Country: US (occurrence: US)
  Receive Date: 20131002
  Receipt Date: 20131002
  Transmission Date: 20140711
  Serious: No
  Sender: FDA-Public Use
  Company Number: US-AMGEN-USASP2013046555

PATIENT
  Age: 11 Year
  Sex: Male
  Weight: 71.66 kg

DRUGS (5)
  1. ENBREL [Suspect]
     Indication: PRODUCT USED FOR UNKNOWN INDICATION
     Dosage: 50 MG, QWK
     Route: 058
  2. MOTRIN JUNIOR [Concomitant]
     Dosage: 100 MG, UNK
  3. SKELAXIN                           /00611501/ [Concomitant]
     Dosage: 800 MG, UNK
  4. SUDAFED PE [Concomitant]
     Dosage: UNK
  5. BENADRYL                           /00000402/ [Concomitant]
     Dosage: 25 MG, UNK

REACTIONS (1)
  - Sinusitis [Recovered/Resolved]
